FAERS Safety Report 9331563 (Version 1)
Quarter: 2013Q2

REPORT INFORMATION
  Report Type: Spontaneous
  Country: US (occurrence: US)
  Receive Date: 20130605
  Receipt Date: 20130605
  Transmission Date: 20140414
  Serious: No
  Sender: FDA-Public Use
  Company Number: US-PFIZER INC-2013166165

PATIENT
  Age: 65 Year
  Sex: Male

DRUGS (2)
  1. XELJANZ [Suspect]
     Dosage: 5 MG, 2X/DAY
  2. METHOTREXATE SODIUM [Suspect]
     Dosage: UNK

REACTIONS (3)
  - Nausea [Unknown]
  - Diarrhoea [Unknown]
  - Asthenia [Unknown]
